FAERS Safety Report 6129797-X (Version None)
Quarter: 2009Q1

REPORT INFORMATION
  Report Type: 
  Country: None (occurrence: None)
  Receive Date: 20090324
  Receipt Date: 20090316
  Transmission Date: 20090719
  Serious: No
  Sender: FDA-Public Use
  Company Number: FR-ROCHE-622567

PATIENT
  Age: 22 Year
  Sex: Female

DRUGS (1)
  1. ROACCUTANE [Suspect]
     Indication: ACNE
     Route: 065
     Dates: start: 20080301, end: 20090101

REACTIONS (2)
  - NO ADVERSE EVENT [None]
  - PREGNANCY [None]
